FAERS Safety Report 18572453 (Version 2)
Quarter: 2020Q4

REPORT INFORMATION
  Report Type: Spontaneous
  Country: US (occurrence: US)
  Receive Date: 20201202
  Receipt Date: 20201228
  Transmission Date: 20210114
  Serious: Yes (Hospitalization, Other)
  Sender: FDA-Public Use
  Company Number: US-PURDUE-USA-2020-0176982

PATIENT
  Sex: Male

DRUGS (2)
  1. HYDROCODONE BITARTRATE AND ACETAMINOPHEN [Suspect]
     Active Substance: ACETAMINOPHEN\HYDROCODONE BITARTRATE
     Indication: PRODUCT USED FOR UNKNOWN INDICATION
     Dosage: UNK
     Route: 048
  2. TRAMADOL. [Suspect]
     Active Substance: TRAMADOL
     Indication: PRODUCT USED FOR UNKNOWN INDICATION
     Dosage: UNK
     Route: 065

REACTIONS (22)
  - Loss of consciousness [Unknown]
  - Withdrawal syndrome [Unknown]
  - Blood cholesterol increased [Unknown]
  - Fatigue [Unknown]
  - Seizure [Unknown]
  - Depression [Unknown]
  - Agitation [Unknown]
  - Back pain [Unknown]
  - Intestinal obstruction [Unknown]
  - Fall [Unknown]
  - Skin laceration [Unknown]
  - Weight increased [Unknown]
  - Anxiety [Unknown]
  - Loss of personal independence in daily activities [Unknown]
  - Constipation [Unknown]
  - Drug dependence [Unknown]
  - Pain [Unknown]
  - Confusional state [Unknown]
  - Learning disability [Unknown]
  - Cardiac disorder [Unknown]
  - Sleep disorder [Unknown]
  - Hypertension [Unknown]
